FAERS Safety Report 23366614 (Version 3)
Quarter: 2024Q1

REPORT INFORMATION
  Report Type: Spontaneous
  Country: US (occurrence: US)
  Receive Date: 20240104
  Receipt Date: 20240115
  Transmission Date: 20240410
  Serious: Yes (Hospitalization, Other)
  Sender: FDA-Public Use
  Company Number: US-ABBVIE-5564493

PATIENT
  Age: 58 Year
  Sex: Female
  Weight: 102 kg

DRUGS (2)
  1. HUMIRA [Suspect]
     Active Substance: ADALIMUMAB
     Indication: Rheumatoid arthritis
     Dosage: FORM STRENGTH: 40 MG
     Route: 058
     Dates: start: 202207
  2. METHOTREXATE [Concomitant]
     Active Substance: METHOTREXATE
     Indication: Rheumatoid arthritis

REACTIONS (6)
  - Cerebrovascular accident [Recovering/Resolving]
  - Injection site haemorrhage [Unknown]
  - Injection site pain [Recovered/Resolved]
  - Injection site bruising [Unknown]
  - Device issue [Not Recovered/Not Resolved]
  - Injection site discharge [Unknown]

NARRATIVE: CASE EVENT DATE: 20220930
